FAERS Safety Report 24979856 (Version 1)
Quarter: 2025Q1

REPORT INFORMATION
  Report Type: Spontaneous
  Country: CH (occurrence: CH)
  Receive Date: 20250218
  Receipt Date: 20250218
  Transmission Date: 20250409
  Serious: Yes (Other)
  Sender: TEVA
  Company Number: CH-TEVA-VS-3283252

PATIENT
  Age: 70 Year
  Sex: Female

DRUGS (4)
  1. FLUOROURACIL [Suspect]
     Active Substance: FLUOROURACIL
     Indication: Lung neoplasm malignant
     Route: 065
     Dates: start: 2024, end: 2024
  2. LEUCOVORIN [Suspect]
     Active Substance: LEUCOVORIN\LEUCOVORIN CALCIUM
     Indication: Lung neoplasm malignant
     Route: 065
     Dates: start: 2024, end: 2024
  3. IRINOTECAN [Suspect]
     Active Substance: IRINOTECAN
     Indication: Lung neoplasm malignant
     Route: 065
     Dates: start: 2024, end: 2024
  4. AFLIBERCEPT [Suspect]
     Active Substance: AFLIBERCEPT
     Indication: Lung neoplasm malignant
     Route: 065
     Dates: start: 2024, end: 2024

REACTIONS (1)
  - Lung neoplasm malignant [Unknown]

NARRATIVE: CASE EVENT DATE: 20240101
